FAERS Safety Report 8511963-7 (Version None)
Quarter: 2012Q3

REPORT INFORMATION
  Report Type: 
  Country: None (occurrence: None)
  Receive Date: 20120716
  Receipt Date: 20120702
  Transmission Date: 20120928
  Serious: Yes (Hospitalization, Other)
  Sender: FDA-Public Use
  Company Number: CH-PFIZER INC-2012153237

PATIENT
  Age: 73 Year
  Sex: Female
  Weight: 44.6 kg

DRUGS (9)
  1. AVELOX [Concomitant]
     Dosage: 40 MG, DAILY
     Route: 048
  2. MYAMBUTOL [Concomitant]
     Dosage: 600 MG, DAILY
     Route: 048
  3. MYCOBUTIN [Interacting]
     Indication: NECK PAIN
     Dosage: 300 MG, 1X/DAY
     Route: 048
  4. PANTOPRAZOLE [Interacting]
     Dosage: 80MG
     Route: 048
  5. AMIKACIN [Concomitant]
     Dosage: 650 MG, (3 IN 1 WK)
     Route: 041
  6. FLECTOR [Suspect]
     Indication: NECK PAIN
     Dosage: 2 DF, DAILY
     Route: 061
     Dates: start: 20111101, end: 20111107
  7. CLARITHROMYCIN [Concomitant]
     Dosage: 250 MG, (2 IN 1 D)
     Route: 048
  8. LORAZEPAM [Concomitant]
     Dosage: 1 MG, AT NIGHT
     Route: 048
  9. PANTOPRAZOLE [Interacting]
     Dosage: 40 MG, 1X/DAY
     Route: 048

REACTIONS (5)
  - DRUG INTERACTION [None]
  - GASTROINTESTINAL HAEMORRHAGE [None]
  - ABDOMINAL PAIN [None]
  - DYSPEPSIA [None]
  - MELAENA [None]
